FAERS Safety Report 7247157-5 (Version None)
Quarter: 2011Q1

REPORT INFORMATION
  Report Type: 
  Country: None (occurrence: None)
  Receive Date: 20110127
  Receipt Date: 20101022
  Transmission Date: 20110831
  Serious: No
  Sender: FDA-Public Use
  Company Number: US-BAUSCH-2010BL005975

PATIENT
  Age: 69 Year
  Sex: Female

DRUGS (1)
  1. ALAWAY [Suspect]
     Indication: EYE PRURITUS
     Route: 047
     Dates: start: 20101013, end: 20101014

REACTIONS (1)
  - DRUG INEFFECTIVE [None]
